FAERS Safety Report 12481180 (Version 1)
Quarter: 2016Q2

REPORT INFORMATION
  Report Type: Spontaneous
  Country: US (occurrence: US)
  Receive Date: 20160620
  Receipt Date: 20160620
  Transmission Date: 20160815
  Serious: Yes (Death)
  Sender: FDA-Public Use
  Company Number: US-ACTELION-A-US2016-137976

PATIENT
  Age: 75 Year
  Sex: Female

DRUGS (11)
  1. OPSUMIT [Suspect]
     Active Substance: MACITENTAN
     Indication: PULMONARY ARTERIAL HYPERTENSION
     Dosage: 10 MG, QD
     Route: 048
  2. INSULIN [Concomitant]
     Active Substance: INSULIN NOS
  3. ALDACTONE [Concomitant]
     Active Substance: SPIRONOLACTONE
  4. CALCIUM [Concomitant]
     Active Substance: CALCIUM
  5. LASIX [Concomitant]
     Active Substance: FUROSEMIDE
  6. IRON [Concomitant]
     Active Substance: IRON
  7. COUMADIN [Concomitant]
     Active Substance: WARFARIN SODIUM
  8. LANTUS [Concomitant]
     Active Substance: INSULIN GLARGINE
  9. UMECLIDINIUM BROMIDE [Concomitant]
     Active Substance: UMECLIDINIUM BROMIDE
  10. ASPIRIN. [Concomitant]
     Active Substance: ASPIRIN
  11. FOLIC ACID. [Concomitant]
     Active Substance: FOLIC ACID

REACTIONS (4)
  - Pulmonary arterial hypertension [Fatal]
  - Diabetic complication [Fatal]
  - Hip fracture [Fatal]
  - Fall [Fatal]
